FAERS Safety Report 16293691 (Version 1)
Quarter: 2019Q2

REPORT INFORMATION
  Report Type: Report from Study
  Country: GT (occurrence: GT)
  Receive Date: 20190509
  Receipt Date: 20190509
  Transmission Date: 20190711
  Serious: Yes (Hospitalization)
  Sender: FDA-Public Use
  Company Number: GT-SA-2019SA127405

PATIENT
  Age: 38 Year
  Sex: Male

DRUGS (1)
  1. HYDROCHLOROTHIAZIDE/IRBESARTAN [Suspect]
     Active Substance: HYDROCHLOROTHIAZIDE\IRBESARTAN
     Indication: HYPERTENSION
     Dosage: 1 DF, QD (1 ORAL TABLET OF 150 MG OF IRBESARTAN + 12.5 MG OF HYDROCHLOROTHIAZIDE EVERY 24 HOURS)
     Route: 048
     Dates: start: 201904

REACTIONS (1)
  - Hyperglycaemia [Unknown]

NARRATIVE: CASE EVENT DATE: 20190501
